FAERS Safety Report 19407740 (Version 3)
Quarter: 2021Q2

REPORT INFORMATION
  Report Type: Report from Study
  Country: None (occurrence: FR)
  Receive Date: 20210612
  Receipt Date: 20210630
  Transmission Date: 20210717
  Serious: Yes (Hospitalization)
  Sender: FDA-Public Use
  Company Number: FR-ABBVIE-21P-056-3926390-00

PATIENT
  Age: 72 Year
  Sex: Male

DRUGS (7)
  1. VENETOCLAX. [Suspect]
     Active Substance: VENETOCLAX
     Route: 048
     Dates: start: 20210510, end: 20210526
  2. CC?90009 [Concomitant]
     Active Substance: INVESTIGATIONAL PRODUCT
     Indication: ACUTE MYELOID LEUKAEMIA
     Route: 042
     Dates: start: 20210312, end: 20210514
  3. AMIKACINE [Concomitant]
     Active Substance: AMIKACIN
     Indication: PROPHYLAXIS
  4. VENETOCLAX. [Suspect]
     Active Substance: VENETOCLAX
     Route: 048
     Dates: start: 20210531
  5. AZACITIDINE. [Concomitant]
     Active Substance: AZACITIDINE
     Indication: ACUTE MYELOID LEUKAEMIA
     Route: 058
     Dates: start: 20210309, end: 20210509
  6. AZACITIDINE. [Concomitant]
     Active Substance: AZACITIDINE
     Route: 058
     Dates: start: 20210510, end: 20210516
  7. VENETOCLAX. [Suspect]
     Active Substance: VENETOCLAX
     Indication: ACUTE MYELOID LEUKAEMIA
     Route: 048
     Dates: start: 20210309, end: 20210309

REACTIONS (1)
  - Pulmonary mucormycosis [Recovered/Resolved]

NARRATIVE: CASE EVENT DATE: 20210522
